FAERS Safety Report 26000415 (Version 1)
Quarter: 2025Q4

REPORT INFORMATION
  Report Type: Spontaneous
  Country: US (occurrence: US)
  Receive Date: 20251105
  Receipt Date: 20251105
  Transmission Date: 20260117
  Serious: No
  Sender: ANI
  Company Number: US-ANIPHARMA-2025-US-037160

PATIENT
  Sex: Male

DRUGS (11)
  1. CORTICOTROPIN [Suspect]
     Active Substance: CORTICOTROPIN
     Indication: Sarcoidosis of lymph node
     Dosage: INJECT 40 UNITS (0.5ML) SUBCUTANEOUSLY TWO TIMES PER WEEK
     Route: 058
  2. HYDROXYCHLOROQUINE SULFATE [Concomitant]
     Active Substance: HYDROXYCHLOROQUINE SULFATE
  3. HYDRALAZINE HYDROCHLORIDE [Concomitant]
     Active Substance: HYDRALAZINE HYDROCHLORIDE
  4. BISOPROLOL FUMARATE [Concomitant]
     Active Substance: BISOPROLOL FUMARATE
  5. METHOTREXATE SODIUM [Concomitant]
     Active Substance: METHOTREXATE SODIUM
  6. CIBINQO [Concomitant]
     Active Substance: ABROCITINIB
  7. FOLIC ACID [Concomitant]
     Active Substance: FOLIC ACID
  8. FLUTICASONE PROPIONATE/SA [Concomitant]
  9. HUMIRA [Concomitant]
     Active Substance: ADALIMUMAB
  10. VALSARTAN [Concomitant]
     Active Substance: VALSARTAN
  11. PREDNISONE [Concomitant]
     Active Substance: PREDNISONE

REACTIONS (2)
  - Injection site bruising [Unknown]
  - Contraindicated product administered [Not Recovered/Not Resolved]
